FAERS Safety Report 7858951-1 (Version None)
Quarter: 2011Q4

REPORT INFORMATION
  Report Type: 
  Country: None (occurrence: None)
  Receive Date: 20111027
  Receipt Date: 20111011
  Transmission Date: 20120403
  Serious: Yes (Hospitalization)
  Sender: FDA-Public Use
  Company Number: US-BAYER-2011-053910

PATIENT
  Age: 46 Year
  Sex: Female
  Weight: 59.864 kg

DRUGS (7)
  1. ANTARA (MICRONIZED) [Concomitant]
     Indication: BLOOD TRIGLYCERIDES INCREASED
     Dosage: UNK
     Dates: start: 20070101, end: 20100101
  2. TRI LIPID [Concomitant]
     Indication: BLOOD TRIGLYCERIDES INCREASED
  3. MECLIZINE [Concomitant]
     Dosage: UNK UNK, PRN
  4. CRESTOR [Concomitant]
     Indication: BLOOD CHOLESTEROL INCREASED
     Dosage: UNK
     Dates: start: 20070101, end: 20100101
  5. YAZ [Suspect]
     Indication: PRODUCT USED FOR UNKNOWN INDICATION
     Dosage: UNK
     Dates: start: 20080401, end: 20090801
  6. TRI LIPID [Concomitant]
     Indication: BLOOD CHOLESTEROL INCREASED
     Dosage: UNK
     Dates: start: 20070101, end: 20100101
  7. VYTORIN [Concomitant]
     Indication: BLOOD CHOLESTEROL INCREASED
     Dosage: UNK
     Dates: start: 20071101, end: 20090101

REACTIONS (6)
  - DEEP VEIN THROMBOSIS [None]
  - INJURY [None]
  - EMOTIONAL DISTRESS [None]
  - ANXIETY [None]
  - OEDEMA PERIPHERAL [None]
  - PAIN [None]
